FAERS Safety Report 19315429 (Version 8)
Quarter: 2023Q2

REPORT INFORMATION
  Report Type: Spontaneous
  Country: US (occurrence: US)
  Receive Date: 20210527
  Receipt Date: 20230613
  Transmission Date: 20230722
  Serious: No
  Sender: FDA-Public Use
  Company Number: US-PFIZER INC-2019489709

PATIENT
  Age: 67 Year
  Sex: Female

DRUGS (3)
  1. RETACRIT [Suspect]
     Active Substance: EPOETIN ALFA-EPBX
     Indication: Type 1 diabetes mellitus
     Dosage: 4000 IU, 2X/WEEK (4,000U SQ TWICE WEEKLY)
     Route: 058
  2. RETACRIT [Suspect]
     Active Substance: EPOETIN ALFA-EPBX
     Indication: Hyperglycaemia
     Dosage: 40000 IU/ML
  3. RETACRIT [Suspect]
     Active Substance: EPOETIN ALFA-EPBX
     Dosage: 4,000 UNITS, EVERY BID WEEKLY

REACTIONS (5)
  - Off label use [Unknown]
  - Anaemia [Unknown]
  - Feeling abnormal [Unknown]
  - COVID-19 [Not Recovered/Not Resolved]
  - Malaise [Unknown]
